FAERS Safety Report 7311758-6 (Version None)
Quarter: 2011Q1

REPORT INFORMATION
  Report Type: 
  Country: None (occurrence: None)
  Receive Date: 20110224
  Receipt Date: 20110208
  Transmission Date: 20110831
  Serious: Yes (Hospitalization, Other)
  Sender: FDA-Public Use
  Company Number: US-BAYER-2011-016713

PATIENT
  Sex: Female
  Weight: 52.154 kg

DRUGS (3)
  1. CLARITIN [Concomitant]
     Indication: PRODUCT USED FOR UNKNOWN INDICATION
  2. ALBUTEROL [Concomitant]
     Indication: PRODUCT USED FOR UNKNOWN INDICATION
  3. YASMIN [Suspect]
     Indication: CONTRACEPTION
     Dosage: UNK
     Dates: start: 20021101, end: 20030701

REACTIONS (7)
  - PLEURITIC PAIN [None]
  - DYSPNOEA EXERTIONAL [None]
  - PULMONARY EMBOLISM [None]
  - FIBROADENOMA OF BREAST [None]
  - URINARY TRACT INFECTION [None]
  - PELVIC VENOUS THROMBOSIS [None]
  - NEPHROLITHIASIS [None]
